FAERS Safety Report 7656009-8 (Version None)
Quarter: 2011Q3

REPORT INFORMATION
  Report Type: 
  Country: None (occurrence: None)
  Receive Date: 20110729
  Receipt Date: 20110714
  Transmission Date: 20111222
  Serious: Yes (Other)
  Sender: FDA-Public Use
  Company Number: AUR-APL-2011-04286

PATIENT
  Age: 76 Year
  Sex: Female

DRUGS (6)
  1. LISINOPRIL [Suspect]
     Indication: PRODUCT USED FOR UNKNOWN INDICATION
  2. SOTALOL HCL [Concomitant]
  3. AMIODARONE HCL [Suspect]
     Indication: PRODUCT USED FOR UNKNOWN INDICATION
     Dates: start: 20110601, end: 20110601
  4. METOPROLOL TARTRATE [Suspect]
     Indication: PRODUCT USED FOR UNKNOWN INDICATION
     Dosage: (50 MG), (25 MG)
  5. DRONEDARONE HCL [Suspect]
     Indication: ATRIAL FIBRILLATION
     Dosage: 800 MG (400 MG, 2 IN 1 D)
     Dates: start: 20110601
  6. POTASSIUM [Concomitant]

REACTIONS (12)
  - LOSS OF CONSCIOUSNESS [None]
  - NAUSEA [None]
  - EXTRASYSTOLES [None]
  - DYSPNOEA [None]
  - HYPERHIDROSIS [None]
  - FALL [None]
  - ARRHYTHMIA [None]
  - OEDEMA PERIPHERAL [None]
  - WEIGHT INCREASED [None]
  - DRUG DOSE OMISSION [None]
  - ABDOMINAL DISTENSION [None]
  - FEELING ABNORMAL [None]
